FAERS Safety Report 7901413-3 (Version None)
Quarter: 2011Q4

REPORT INFORMATION
  Report Type: 
  Country: None (occurrence: None)
  Receive Date: 20111108
  Receipt Date: 20111026
  Transmission Date: 20120403
  Serious: Yes (Hospitalization)
  Sender: FDA-Public Use
  Company Number: NL-AMGEN-QUU429180

PATIENT
  Age: 56 Year
  Sex: Female

DRUGS (8)
  1. IBUPROFEN [Concomitant]
     Indication: RHEUMATOID ARTHRITIS
     Dosage: 600 MG, AS NEEDED
     Route: 065
     Dates: start: 20100301
  2. NASONEX [Concomitant]
     Indication: SEASONAL ALLERGY
     Dosage: UNK
     Route: 045
     Dates: start: 20060101
  3. BROTIZOLAM [Concomitant]
     Indication: SLEEP DISORDER
     Dosage: .25 MG, 2X/DAY
     Route: 065
     Dates: start: 20050101
  4. ETANERCEPT [Suspect]
     Indication: SLEEP DISORDER
     Dosage: 50 MG, QWK
     Route: 058
     Dates: start: 20100715
  5. OMEPRAZOLE [Concomitant]
     Indication: PROPHYLAXIS
     Dosage: 20 MG, 1X/DAY
     Route: 065
     Dates: start: 20100301
  6. FLUVOXAMINE MALEATE [Concomitant]
     Indication: BURNOUT SYNDROME
     Dosage: 50 MG, 2X/DAY
     Route: 065
     Dates: start: 20050101
  7. METHOTREXATE SODIUM [Concomitant]
     Indication: RHEUMATOID ARTHRITIS
     Dosage: 10 MG, WEEKLY
     Route: 048
     Dates: start: 20100715
  8. FEXOFENADINE [Concomitant]
     Indication: SEASONAL ALLERGY
     Dosage: 120 MG, 1X/DAY
     Route: 065
     Dates: start: 20060101

REACTIONS (1)
  - HEADACHE [None]
